FAERS Safety Report 8928932 (Version 1)
Quarter: 2012Q4

REPORT INFORMATION
  Report Type: 
  Country: BR (occurrence: BR)
  Receive Date: 20121127
  Receipt Date: 20121127
  Transmission Date: 20130627
  Serious: Yes (Other)
  Sender: FDA-Public Use
  Company Number: CHPA2012BR023203

PATIENT
  Sex: Male
  Weight: 65 kg

DRUGS (1)
  1. CIBALENAA [Suspect]
     Indication: HEADACHE
     Dosage: 1 DF, PRN headache
     Route: 048

REACTIONS (2)
  - Cataract [Recovered/Resolved]
  - Hypertension [Recovered/Resolved]
